FAERS Safety Report 7634621-X (Version None)
Quarter: 2011Q3

REPORT INFORMATION
  Report Type: 
  Country: None (occurrence: None)
  Receive Date: 20110725
  Receipt Date: 20110715
  Transmission Date: 20111222
  Serious: Yes (Life-Threatening, Hospitalization, Other)
  Sender: FDA-Public Use
  Company Number: US-MERCK-1106USA01383

PATIENT
  Age: 59 Year
  Sex: Female
  Weight: 72 kg

DRUGS (10)
  1. LISINOPRIL [Concomitant]
     Route: 048
  2. CLOBETASOL PROPIONATE [Concomitant]
     Route: 065
  3. VITAMINS (UNSPECIFIED) [Concomitant]
     Route: 065
  4. OS-CAL + D [Concomitant]
     Route: 065
  5. ASPIRIN [Concomitant]
     Route: 048
  6. VYTORIN [Suspect]
     Indication: HYPERLIPIDAEMIA
     Route: 048
     Dates: start: 20090901, end: 20110603
  7. GLYBURIDE AND METFORMIN HYDROCHLORIDE [Concomitant]
     Route: 048
     Dates: end: 20110501
  8. DYAZIDE [Concomitant]
     Route: 065
  9. LANTUS [Concomitant]
     Indication: INSULIN-REQUIRING TYPE 2 DIABETES MELLITUS
     Route: 065
  10. AMLODIPINE [Concomitant]
     Route: 048

REACTIONS (6)
  - TRANSAMINASES INCREASED [None]
  - HYPOKALAEMIA [None]
  - RHABDOMYOLYSIS [None]
  - HEPATIC STEATOSIS [None]
  - ASYMPTOMATIC BACTERIURIA [None]
  - SINUS TACHYCARDIA [None]
